FAERS Safety Report 17391880 (Version 2)
Quarter: 2020Q2

REPORT INFORMATION
  Report Type: Spontaneous
  Country: US (occurrence: US)
  Receive Date: 20200207
  Receipt Date: 20200429
  Transmission Date: 20200713
  Serious: No
  Sender: FDA-Public Use
  Company Number: NVSC2020US031114

PATIENT
  Sex: Female

DRUGS (1)
  1. ZARXIO [Suspect]
     Active Substance: FILGRASTIM-SNDZ
     Indication: PRODUCT USED FOR UNKNOWN INDICATION
     Dosage: 48 MICRO INTERNATIONAL UNIT
     Route: 065
     Dates: start: 20200117

REACTIONS (1)
  - Accidental exposure to product [Unknown]
